FAERS Safety Report 8764493 (Version 1)
Quarter: 2012Q4

REPORT INFORMATION
  Report Type: 
  Country: US (occurrence: US)
  Receive Date: 20120831
  Receipt Date: 20120831
  Transmission Date: 20130627
  Serious: No
  Sender: FDA-Public Use
  Company Number: US-ASTRAZENECA-2012SE58060

PATIENT
  Age: 65 Year
  Sex: Male

DRUGS (6)
  1. OMEPRAZOLE [Suspect]
     Route: 048
  2. NEXIUM [Concomitant]
  3. PREVACID [Concomitant]
  4. ACIPHEX [Concomitant]
  5. PANTOPRAZOLE [Concomitant]
  6. H2 BLOCKERS [Concomitant]

REACTIONS (2)
  - Hiatus hernia [Unknown]
  - Drug ineffective [Unknown]
